FAERS Safety Report 8528290 (Version 2)
Quarter: 2013Q3

REPORT INFORMATION
  Report Type: Spontaneous
  Country: US (occurrence: US)
  Receive Date: 20120424
  Receipt Date: 20130709
  Transmission Date: 20140515
  Serious: No
  Sender: FDA-Public Use
  Company Number: US-PFIZER INC-2012096653

PATIENT
  Age: 65 Year
  Sex: Male
  Weight: 122 kg

DRUGS (17)
  1. TETRACYCLINE HCL [Suspect]
     Dosage: UNK
  2. AMIODARONE HCL [Suspect]
     Dosage: UNK
  3. ALDACTONE [Suspect]
     Dosage: UNK
  4. POLYETHYLENE GLYCOL [Concomitant]
     Dosage: 17 G, DAILY
  5. TYLENOL [Concomitant]
     Dosage: 975 MG, 3X/DAY
  6. PRAVASTATIN [Concomitant]
     Dosage: 80 MG, DAILY
  7. ROCEPHIN [Concomitant]
     Dosage: 2 G, DAILY
  8. OMEPRAZOLE [Concomitant]
     Dosage: 40 MG, 2X/DAY
  9. WARFARIN SODIUM [Concomitant]
     Dosage: 10 MG, DAILY
  10. LANOXIN [Concomitant]
     Dosage: 0.125 MG, DAILY
  11. FISH OIL [Concomitant]
     Dosage: 1000 MG, 2X/DAY
  12. MAGNESIUM OXIDE [Concomitant]
     Dosage: 400 MG, DAILY
  13. LISINOPRIL [Concomitant]
     Dosage: 5 MG, DAILY
  14. METHOCARBAMOL [Concomitant]
     Dosage: 1000 MG, 3X/DAY
  15. COREG [Concomitant]
     Dosage: 50 MG, 2X/DAY
  16. GLIPIZIDE [Concomitant]
     Dosage: 10 MG, 2X/DAY
  17. BUMEX [Concomitant]
     Dosage: 1 MG, 2X/DAY

REACTIONS (1)
  - Drug hypersensitivity [Unknown]
